FAERS Safety Report 6685875-8 (Version None)
Quarter: 2010Q2

REPORT INFORMATION
  Report Type: 
  Country: None (occurrence: None)
  Receive Date: 20100415
  Receipt Date: 20100415
  Transmission Date: 20101027
  Serious: Yes (Hospitalization)
  Sender: FDA-Public Use
  Company Number: None

PATIENT
  Sex: Female
  Weight: 114 kg

DRUGS (2)
  1. TOPIRAMATE [Suspect]
     Indication: MIGRAINE
     Dosage: 100 MG EVERY MORNING BY MOUTH
     Route: 048
  2. TOPIRAMATE [Suspect]

REACTIONS (2)
  - DIZZINESS [None]
  - VERTIGO [None]
